FAERS Safety Report 6279944-4 (Version None)
Quarter: 2009Q3

REPORT INFORMATION
  Report Type: 
  Country: None (occurrence: None)
  Receive Date: 20090723
  Receipt Date: 20090223
  Transmission Date: 20100115
  Serious: Yes (Other)
  Sender: FDA-Public Use
  Company Number: US-AMGEN-QUU335151

PATIENT
  Sex: Male

DRUGS (7)
  1. EPOGEN [Suspect]
     Indication: DIALYSIS
     Route: 065
     Dates: start: 20070401
  2. PROCRIT [Suspect]
     Indication: DIALYSIS
     Route: 065
     Dates: start: 20050101, end: 20070401
  3. PLENDIL [Concomitant]
  4. MINOXIDIL [Concomitant]
  5. LABETALOL HCL [Concomitant]
  6. CLONIDINE [Concomitant]
  7. AVAPRO [Concomitant]

REACTIONS (3)
  - HAEMOGLOBIN DECREASED [None]
  - HEADACHE [None]
  - HYPERTENSION [None]
